FAERS Safety Report 7665389-9 (Version None)
Quarter: 2011Q3

REPORT INFORMATION
  Report Type: 
  Country: None (occurrence: None)
  Receive Date: 20110806
  Receipt Date: 20110413
  Transmission Date: 20111222
  Serious: No
  Sender: FDA-Public Use
  Company Number: US-ABBOTT-11P-163-0718952-00

PATIENT
  Sex: Female
  Weight: 76.272 kg

DRUGS (4)
  1. NIASPAN [Suspect]
     Indication: BLOOD TRIGLYCERIDES INCREASED
     Dates: start: 20110412
  2. CRESTOR [Concomitant]
     Indication: BLOOD CHOLESTEROL INCREASED
  3. DIAZEPAM [Concomitant]
     Indication: INTERVERTEBRAL DISC PROTRUSION
  4. HYDROCODONE [Concomitant]
     Indication: INTERVERTEBRAL DISC PROTRUSION

REACTIONS (1)
  - DYSGEUSIA [None]
